FAERS Safety Report 7818021-5 (Version None)
Quarter: 2011Q4

REPORT INFORMATION
  Report Type: 
  Country: None (occurrence: None)
  Receive Date: 20111012
  Receipt Date: 20111003
  Transmission Date: 20120403
  Serious: Yes (Death, Other)
  Sender: FDA-Public Use
  Company Number: GB-ACCORD-010890

PATIENT
  Sex: Male

DRUGS (5)
  1. PREDNISOLONE [Suspect]
     Indication: LANGERHANS' CELL HISTIOCYTOSIS
     Dosage: UNKNOWN
  2. ETOPOSIDE [Suspect]
     Indication: LANGERHANS' CELL HISTIOCYTOSIS
     Dosage: UNKNOWN
  3. CYTARABINE [Suspect]
     Indication: LANGERHANS' CELL HISTIOCYTOSIS
     Dosage: UNKNOWN
  4. CLADRIBINE [Suspect]
     Indication: LANGERHANS' CELL HISTIOCYTOSIS
     Dosage: UNKNOWN
  5. VINBLASTINE SULFATE [Suspect]
     Indication: LANGERHANS' CELL HISTIOCYTOSIS
     Dosage: UNKNOWN

REACTIONS (5)
  - TOXICITY TO VARIOUS AGENTS [None]
  - SEPSIS [None]
  - OFF LABEL USE [None]
  - ASPERGILLOSIS [None]
  - PANCYTOPENIA [None]
